FAERS Safety Report 6397413-8 (Version None)
Quarter: 2009Q4

REPORT INFORMATION
  Report Type: 
  Country: None (occurrence: None)
  Receive Date: 20091012
  Receipt Date: 20090929
  Transmission Date: 20100525
  Serious: Yes (Hospitalization)
  Sender: FDA-Public Use
  Company Number: PHEH2009US12733

PATIENT
  Sex: Female

DRUGS (10)
  1. EXJADE [Suspect]
     Indication: SICKLE CELL ANAEMIA
     Dosage: 1500 MG DAILY
     Route: 048
     Dates: start: 20051114
  2. EXJADE [Suspect]
     Indication: IRON OVERLOAD
  3. LORTAB [Concomitant]
     Indication: PAIN
     Dosage: 1 TAB Q4H PRN
     Route: 048
  4. LORTAB [Concomitant]
     Indication: SICKLE CELL ANAEMIA
  5. LEXAPRO [Concomitant]
     Indication: DEPRESSION
     Dosage: 10 MG, QD
     Route: 048
     Dates: start: 20080428
  6. ELAVIL [Concomitant]
     Indication: PAIN
     Dosage: UNK
     Route: 048
     Dates: start: 20081104
  7. ELAVIL [Concomitant]
     Indication: SLEEP DISORDER
  8. DEPO-PROVERA [Concomitant]
     Indication: CONTRACEPTION
     Dosage: IM Q3M
     Route: 030
  9. BENADRYL ^ACHE^ [Concomitant]
     Indication: PRURITUS
     Dosage: 25 MG, UNK
     Dates: start: 20090921, end: 20090930
  10. FRAGMIN [Concomitant]
     Indication: THROMBOSIS PROPHYLAXIS
     Dosage: 5000 U, QD
     Route: 058
     Dates: start: 20090921, end: 20090930

REACTIONS (8)
  - BLOOD CULTURE POSITIVE [None]
  - CHILLS [None]
  - MALAISE [None]
  - PAIN [None]
  - PYREXIA [None]
  - SEPSIS [None]
  - SICKLE CELL ANAEMIA WITH CRISIS [None]
  - VIRAL INFECTION [None]
